FAERS Safety Report 12383285 (Version 2)
Quarter: 2016Q2

REPORT INFORMATION
  Report Type: Spontaneous
  Country: BR (occurrence: BR)
  Receive Date: 20160518
  Receipt Date: 20160630
  Transmission Date: 20160815
  Serious: Yes (Hospitalization, Other)
  Sender: FDA-Public Use
  Company Number: BR-PFIZER INC-2016152647

PATIENT
  Age: 51 Year
  Sex: Female
  Weight: 129 kg

DRUGS (4)
  1. MICARDIS [Concomitant]
     Active Substance: TELMISARTAN
     Indication: HYPERTENSION
     Dosage: 1 DF, DAILY
     Dates: start: 2006
  2. DOSTINEX [Suspect]
     Active Substance: CABERGOLINE
     Indication: BLOOD PROLACTIN INCREASED
     Dosage: 1 MG, WEEKLY (2 TABLETS OF 0.5MG PER WEEK)
  3. DOSTINEX [Suspect]
     Active Substance: CABERGOLINE
     Dosage: 1 MG, WEEKLY (2 TABLETS OF 0.5MG PER WEEK)
     Dates: start: 201605
  4. GLIFAGE [Concomitant]
     Active Substance: METFORMIN HYDROCHLORIDE
     Indication: DIABETES MELLITUS
     Dosage: UNK
     Dates: start: 2015

REACTIONS (14)
  - Macular hole [Not Recovered/Not Resolved]
  - Obesity [Unknown]
  - Blood prolactin increased [Recovering/Resolving]
  - Vision blurred [Recovering/Resolving]
  - Disease recurrence [Unknown]
  - Hypertension [Recovered/Resolved]
  - Nervousness [Unknown]
  - Cholelithiasis [Recovered/Resolved]
  - Dry mouth [Recovered/Resolved]
  - Dysphagia [Recovered/Resolved]
  - Abdominal pain [Recovered/Resolved]
  - Dizziness [Recovering/Resolving]
  - Breast disorder [Not Recovered/Not Resolved]
  - Stress [Unknown]

NARRATIVE: CASE EVENT DATE: 2015
